FAERS Safety Report 17099995 (Version 1)
Quarter: 2019Q4

REPORT INFORMATION
  Report Type: Spontaneous
  Country: KR (occurrence: KR)
  Receive Date: 20191202
  Receipt Date: 20191202
  Transmission Date: 20200122
  Serious: Yes (Other)
  Sender: FDA-Public Use
  Company Number: KR-AMGEN-KORSP2019197933

PATIENT

DRUGS (1)
  1. DARBEPOETIN ALFA [Suspect]
     Active Substance: DARBEPOETIN ALFA
     Indication: PRODUCT USED FOR UNKNOWN INDICATION
     Dosage: UNK
     Route: 065

REACTIONS (19)
  - Gastrointestinal disorder [Unknown]
  - Metabolic disorder [Unknown]
  - Malnutrition [Unknown]
  - Ear disorder [Unknown]
  - Inner ear disorder [Unknown]
  - Ill-defined disorder [Unknown]
  - Infection [Unknown]
  - Poisoning [Unknown]
  - Deafness neurosensory [Recovered/Resolved]
  - Connective tissue disorder [Unknown]
  - Angiopathy [Unknown]
  - Nervous system disorder [Unknown]
  - Administration site reaction [Unknown]
  - Cardiac disorder [Unknown]
  - Procedural complication [Unknown]
  - Musculoskeletal disorder [Unknown]
  - Eye disorder [Unknown]
  - Injury [Unknown]
  - Respiratory disorder [Unknown]
